FAERS Safety Report 15691597 (Version 1)
Quarter: 2018Q4

REPORT INFORMATION
  Report Type: Spontaneous
  Country: CZ (occurrence: CZ)
  Receive Date: 20181205
  Receipt Date: 20181205
  Transmission Date: 20190205
  Serious: Yes (Other)
  Sender: FDA-Public Use
  Company Number: CZ-BAYER-2018-221293

PATIENT
  Age: 74 Year
  Sex: Male

DRUGS (3)
  1. THROMBOREDUCTIN [Concomitant]
     Indication: THROMBOCYTOSIS
  2. ADEMPAS [Suspect]
     Active Substance: RIOCIGUAT
     Indication: PULMONARY HYPERTENSION
     Dosage: UNK
  3. AMLODIPINE [Concomitant]
     Active Substance: AMLODIPINE BESYLATE
     Indication: HYPERTENSION

REACTIONS (2)
  - Right ventricular failure [Recovering/Resolving]
  - Fluid retention [Recovering/Resolving]
